FAERS Safety Report 8136868-5 (Version None)
Quarter: 2012Q1

REPORT INFORMATION
  Report Type: 
  Country: None (occurrence: None)
  Receive Date: 20120214
  Receipt Date: 20120207
  Transmission Date: 20120608
  Serious: Yes (Life-Threatening, Hospitalization, Other)
  Sender: FDA-Public Use
  Company Number: US-CELGENEUS-163-21880-11100833

PATIENT
  Sex: Male

DRUGS (15)
  1. REVLIMID [Suspect]
     Dosage: 15 MILLIGRAM
     Route: 048
     Dates: start: 20081201
  2. OXYCONTIN [Concomitant]
     Indication: PAIN
     Dosage: 10 MILLIGRAM
     Route: 048
  3. PLAVIX [Concomitant]
     Dosage: 75 MILLIGRAM
     Route: 065
  4. REVLIMID [Suspect]
     Indication: MULTIPLE MYELOMA
     Dosage: 10 MILLIGRAM
     Route: 048
     Dates: start: 20071015
  5. REVLIMID [Suspect]
     Dosage: 15 MILLIGRAM
     Route: 048
     Dates: start: 20091101
  6. ZOCOR [Concomitant]
     Dosage: 40 MILLIGRAM
     Route: 065
  7. NITROGLYCERIN [Concomitant]
     Dosage: 3.125 MILLIGRAM
     Route: 060
  8. LOVAZA [Concomitant]
     Dosage: 2 GRAM
     Route: 048
  9. REVLIMID [Suspect]
     Route: 048
     Dates: start: 20120101
  10. REVLIMID [Suspect]
     Route: 048
     Dates: start: 20110401, end: 20110101
  11. PROTONIX [Concomitant]
     Dosage: 40 MILLIGRAM
     Route: 065
  12. COREG [Concomitant]
     Route: 065
  13. REVLIMID [Suspect]
     Dosage: 15 MILLIGRAM
     Route: 048
     Dates: start: 20100701
  14. OXYCODONE HCL [Concomitant]
     Indication: PAIN
     Dosage: 5-10MG
     Route: 048
  15. ASPIRIN [Concomitant]
     Dosage: 81 MILLIGRAM
     Route: 065

REACTIONS (2)
  - MYOCARDIAL INFARCTION [None]
  - CORONARY ARTERY DISEASE [None]
